FAERS Safety Report 16025938 (Version 2)
Quarter: 2019Q2

REPORT INFORMATION
  Report Type: Spontaneous
  Country: LT (occurrence: LT)
  Receive Date: 20190302
  Receipt Date: 20190429
  Transmission Date: 20190711
  Serious: Yes (Hospitalization)
  Sender: FDA-Public Use
  Company Number: LT-ACCORD-110032

PATIENT
  Age: 27 Year
  Sex: Female

DRUGS (3)
  1. HALOPERIDOL/HALOPERIDOL DECANOATE/HALOPERIDOL LACTATE [Suspect]
     Active Substance: HALOPERIDOL
     Indication: PSYCHOTIC DISORDER
     Dosage: 7.5 MG PER DAY
     Route: 030
  2. ARIPIPRAZOLE. [Suspect]
     Active Substance: ARIPIPRAZOLE
     Indication: HYPERPROLACTINAEMIA
     Dosage: 15 MG PER DAY
  3. LORAZEPAM. [Suspect]
     Active Substance: LORAZEPAM
     Indication: PSYCHOTIC DISORDER
     Dosage: 2.5 MG PER DAY

REACTIONS (3)
  - Stereotypy [Recovering/Resolving]
  - Extrapyramidal disorder [Recovering/Resolving]
  - Anxiety [Recovering/Resolving]
